FAERS Safety Report 6467348-0 (Version None)
Quarter: 2009Q4

REPORT INFORMATION
  Report Type: 
  Country: None (occurrence: None)
  Receive Date: 20091130
  Receipt Date: 20091112
  Transmission Date: 20100525
  Serious: Yes (Other)
  Sender: FDA-Public Use
  Company Number: 2009SP002807

PATIENT
  Age: 58 Year
  Sex: Female

DRUGS (11)
  1. ALVESCO [Suspect]
     Indication: ASTHMA
     Dosage: 160 UG;BID;INHALATION ; 320 UG;BID;INHALATION
     Route: 055
     Dates: start: 20090101, end: 20090101
  2. ALVESCO [Suspect]
     Indication: ASTHMA
     Dosage: 160 UG;BID;INHALATION ; 320 UG;BID;INHALATION
     Route: 055
     Dates: start: 20090105, end: 20090101
  3. ALVESCO [Suspect]
     Indication: ASTHMA
     Dosage: 160 UG;BID;INHALATION ; 320 UG;BID;INHALATION
     Route: 055
     Dates: start: 20090801
  4. XOPENEX [Concomitant]
  5. XOPENEX HFA INHALATION [Concomitant]
  6. AEROSOL [Concomitant]
  7. KLONOPIN [Concomitant]
  8. NORETHINDRONE AND ETHINYL ESTRADIOL [Concomitant]
  9. ALBUTEROL [Concomitant]
  10. ALENDRONATE SODIUM [Concomitant]
  11. FLORINEF [Concomitant]

REACTIONS (3)
  - BRONCHIAL SECRETION RETENTION [None]
  - HAEMOPTYSIS [None]
  - HEART VALVE INCOMPETENCE [None]
